FAERS Safety Report 5527510-8 (Version None)
Quarter: 2007Q4

REPORT INFORMATION
  Report Type: 
  Country: None (occurrence: None)
  Receive Date: 20071128
  Receipt Date: 20071116
  Transmission Date: 20080405
  Serious: No
  Sender: FDA-Public Use
  Company Number: GB-ELI_LILLY_AND_COMPANY-GB200711004940

PATIENT
  Sex: Female

DRUGS (2)
  1. OLANZAPINE [Suspect]
  2. CIPRALEX [Concomitant]

REACTIONS (1)
  - FIBRIN D DIMER INCREASED [None]
